FAERS Safety Report 23406036 (Version 1)
Quarter: 2024Q1

REPORT INFORMATION
  Report Type: Spontaneous
  Country: US (occurrence: None)
  Receive Date: 20240114
  Receipt Date: 20240114
  Transmission Date: 20240410
  Serious: Yes (Hospitalization)
  Sender: FDA-Public Use
  Company Number: None

PATIENT

DRUGS (1)
  1. METOPROLOL TARTRATE [Suspect]
     Active Substance: METOPROLOL TARTRATE

REACTIONS (7)
  - Product barcode issue [None]
  - Drug monitoring procedure not performed [None]
  - Transcription medication error [None]
  - Incorrect route of product administration [None]
  - Extra dose administered [None]
  - Wrong technique in product usage process [None]
  - Device computer issue [None]
